FAERS Safety Report 9829067 (Version 2)
Quarter: 2014Q1

REPORT INFORMATION
  Report Type: Spontaneous
  Country: US (occurrence: US)
  Receive Date: 20140119
  Receipt Date: 20140124
  Transmission Date: 20141002
  Serious: Yes (Disabling)
  Sender: FDA-Public Use
  Company Number: US-ASTRAZENECA-2014SE02576

PATIENT
  Age: 57 Year
  Sex: Male
  Weight: 93.4 kg

DRUGS (7)
  1. PRILOSEC [Suspect]
     Indication: GASTROOESOPHAGEAL REFLUX DISEASE
     Route: 048
     Dates: end: 201207
  2. PRILOSEC [Suspect]
     Indication: GASTROOESOPHAGEAL REFLUX DISEASE
     Dosage: GENERIC OMEPRAZOLE, 20 MG DAILY
     Route: 048
     Dates: start: 201207, end: 201301
  3. PRILOSEC [Suspect]
     Indication: GASTROOESOPHAGEAL REFLUX DISEASE
     Dosage: GENERIC OMEPRAZOLE, 20 MG AM AND 20 MG PM
     Route: 048
     Dates: start: 201301
  4. LISINOPRIL [Suspect]
     Indication: RENAL DISORDER
     Route: 048
     Dates: start: 2009
  5. FISH OIL [Concomitant]
     Indication: SUPPLEMENTATION THERAPY
     Route: 048
  6. ASPIRIN [Concomitant]
     Indication: CARDIAC DISORDER
     Route: 048
  7. LIPITOR [Concomitant]
     Indication: BLOOD CHOLESTEROL ABNORMAL
     Route: 048

REACTIONS (17)
  - Back injury [Not Recovered/Not Resolved]
  - Accident [Unknown]
  - Thirst [Unknown]
  - Pollakiuria [Unknown]
  - Glucose tolerance impaired [Unknown]
  - Blood cholesterol abnormal [Unknown]
  - Asthma [Unknown]
  - Fatigue [Unknown]
  - Gastrointestinal sounds abnormal [Unknown]
  - Dyspnoea paroxysmal nocturnal [Unknown]
  - Abdominal pain upper [Unknown]
  - Blood magnesium decreased [Unknown]
  - Dry mouth [Unknown]
  - Off label use [Unknown]
  - Intentional drug misuse [Unknown]
  - Drug ineffective [Recovered/Resolved]
  - Gastrooesophageal reflux disease [Recovered/Resolved]
